FAERS Safety Report 7405999-7 (Version None)
Quarter: 2011Q2

REPORT INFORMATION
  Report Type: 
  Country: None (occurrence: None)
  Receive Date: 20110411
  Receipt Date: 20110404
  Transmission Date: 20111010
  Serious: Yes (Hospitalization)
  Sender: FDA-Public Use
  Company Number: A0886201A

PATIENT
  Sex: Male
  Weight: 87.3 kg

DRUGS (6)
  1. AVANDIA [Suspect]
     Route: 048
     Dates: start: 20040301, end: 20070701
  2. METFORMIN HCL [Concomitant]
  3. SYNTHROID [Concomitant]
  4. ACTOS [Concomitant]
     Dates: start: 20070727
  5. VASOTEC [Concomitant]
  6. LIPITOR [Concomitant]

REACTIONS (1)
  - MYOCARDIAL INFARCTION [None]
